FAERS Safety Report 6627959-6 (Version None)
Quarter: 2010Q1

REPORT INFORMATION
  Report Type: 
  Country: None (occurrence: None)
  Receive Date: 20100311
  Receipt Date: 20090420
  Transmission Date: 20100710
  Serious: No
  Sender: FDA-Public Use
  Company Number: A0779550A

PATIENT
  Age: 66 Year
  Sex: Female

DRUGS (1)
  1. NICORETTE [Suspect]
     Dates: start: 20090204, end: 20090419

REACTIONS (9)
  - ANXIETY [None]
  - CONFUSIONAL STATE [None]
  - DIARRHOEA [None]
  - DYSPEPSIA [None]
  - FEELING JITTERY [None]
  - FUNGAL INFECTION [None]
  - NERVOUSNESS [None]
  - TENSION [None]
  - TREMOR [None]
